FAERS Safety Report 8268769-6 (Version None)
Quarter: 2012Q2

REPORT INFORMATION
  Report Type: 
  Country: None (occurrence: None)
  Receive Date: 20120409
  Receipt Date: 20120409
  Transmission Date: 20120825
  Serious: Yes (Other)
  Sender: FDA-Public Use
  Company Number: None

PATIENT

DRUGS (1)
  1. GABAPENTIN [Suspect]
     Indication: NEURALGIA
     Dosage: 300MG-1PILL
     Route: 048
     Dates: start: 20120306, end: 20120329

REACTIONS (9)
  - THINKING ABNORMAL [None]
  - OEDEMA PERIPHERAL [None]
  - ABNORMAL BEHAVIOUR [None]
  - FEELING ABNORMAL [None]
  - SWELLING [None]
  - PSYCHOMOTOR HYPERACTIVITY [None]
  - MOVEMENT DISORDER [None]
  - CARDIAC FLUTTER [None]
  - NERVOUSNESS [None]
